FAERS Safety Report 7531331-4 (Version None)
Quarter: 2011Q2

REPORT INFORMATION
  Report Type: 
  Country: None (occurrence: None)
  Receive Date: 20110606
  Receipt Date: 20110606
  Transmission Date: 20111010
  Serious: Yes (Other)
  Sender: FDA-Public Use
  Company Number: None

PATIENT
  Sex: Male
  Weight: 121.1104 kg

DRUGS (1)
  1. TAMSULOSIN HCL [Suspect]
     Indication: URINARY INCONTINENCE
     Dosage: 0.4 MG 1/DAY
     Dates: start: 20110506, end: 20110514

REACTIONS (2)
  - EJACULATION FAILURE [None]
  - RETROGRADE EJACULATION [None]
